FAERS Safety Report 12883224 (Version 1)
Quarter: 2016Q4

REPORT INFORMATION
  Report Type: Spontaneous
  Country: FI (occurrence: FI)
  Receive Date: 20161025
  Receipt Date: 20161025
  Transmission Date: 20170207
  Serious: No
  Sender: FDA-Public Use
  Company Number: FI-TOLMAR, INC.-2016FI004176

PATIENT
  Sex: Male

DRUGS (1)
  1. ELIGARD [Suspect]
     Active Substance: LEUPROLIDE ACETATE
     Indication: PRODUCT USED FOR UNKNOWN INDICATION
     Dosage: 45 MG, EVERY 6 MONTHS
     Route: 065

REACTIONS (2)
  - Product solubility abnormal [Unknown]
  - Drug dose omission [Unknown]
